FAERS Safety Report 12693328 (Version 1)
Quarter: 2016Q3

REPORT INFORMATION
  Report Type: Spontaneous
  Country: US (occurrence: US)
  Receive Date: 20160829
  Receipt Date: 20160829
  Transmission Date: 20161109
  Serious: No
  Sender: FDA-Public Use
  Company Number: US-009507513-1608USA003378

PATIENT
  Sex: Female
  Weight: 62.59 kg

DRUGS (1)
  1. KEYTRUDA [Suspect]
     Active Substance: PEMBROLIZUMAB
     Indication: MALIGNANT MELANOMA
     Dosage: ROUTE: INFUSION
     Dates: start: 20160418, end: 20160621

REACTIONS (4)
  - Ageusia [Unknown]
  - Decreased appetite [Unknown]
  - Therapy non-responder [Unknown]
  - Visual impairment [Unknown]

NARRATIVE: CASE EVENT DATE: 2016
